FAERS Safety Report 8536836-5 (Version None)
Quarter: 2012Q3

REPORT INFORMATION
  Report Type: 
  Country: None (occurrence: None)
  Receive Date: 20120725
  Receipt Date: 20120719
  Transmission Date: 20120928
  Serious: Yes (Hospitalization)
  Sender: FDA-Public Use
  Company Number: US-ELI_LILLY_AND_COMPANY-US201205003489

PATIENT
  Sex: Female
  Weight: 102.4 kg

DRUGS (1)
  1. EFFIENT [Suspect]
     Dosage: UNK
     Dates: start: 20110609

REACTIONS (2)
  - CORONARY OSTIAL STENOSIS [None]
  - NON-CARDIAC CHEST PAIN [None]
